FAERS Safety Report 15009700 (Version 2)
Quarter: 2018Q3

REPORT INFORMATION
  Report Type: Spontaneous
  Country: US (occurrence: US)
  Receive Date: 20180614
  Receipt Date: 20180704
  Transmission Date: 20181010
  Serious: No
  Sender: FDA-Public Use
  Company Number: US-SHIRE-US201821631

PATIENT
  Age: 85 Year

DRUGS (1)
  1. XIIDRA [Suspect]
     Active Substance: LIFITEGRAST
     Indication: DRY EYE
     Dosage: 1 GTT, 1X/DAY:QD
     Route: 047

REACTIONS (6)
  - Product container issue [Unknown]
  - Instillation site lacrimation [Unknown]
  - Drug ineffective [Unknown]
  - Vision blurred [Unknown]
  - Inappropriate schedule of drug administration [Unknown]
  - Instillation site reaction [Unknown]
